FAERS Safety Report 4467228-6 (Version None)
Quarter: 2004Q4

REPORT INFORMATION
  Report Type: 
  Country: None (occurrence: None)
  Receive Date: 20041001
  Receipt Date: 20040923
  Transmission Date: 20050328
  Serious: Yes (Other)
  Sender: FDA-Public Use
  Company Number: US-JNJFOC-20040600303

PATIENT
  Age: 37 Year
  Sex: Female

DRUGS (19)
  1. EXTRA STRENGTH TYLENOL PRODUCT (ACETAMINOPHEN) [Suspect]
     Indication: BACK PAIN
     Dosage: SEE IMAGE
     Route: 048
     Dates: end: 20040101
  2. EXTRA STRENGTH TYLENOL PRODUCT (ACETAMINOPHEN) [Suspect]
     Indication: HEADACHE
     Dosage: SEE IMAGE
     Route: 048
     Dates: end: 20040101
  3. EXTRA STRENGTH TYLENOL PRODUCT (ACETAMINOPHEN) [Suspect]
     Indication: MYALGIA
     Dosage: SEE IMAGE
     Route: 048
     Dates: end: 20040101
  4. EXTRA STRENGTH TYLENOL PRODUCT (ACETAMINOPHEN) [Suspect]
     Indication: BACK PAIN
     Dosage: SEE IMAGE
     Route: 048
     Dates: start: 20040101
  5. EXTRA STRENGTH TYLENOL PRODUCT (ACETAMINOPHEN) [Suspect]
     Indication: HEADACHE
     Dosage: SEE IMAGE
     Route: 048
     Dates: start: 20040101
  6. EXTRA STRENGTH TYLENOL PRODUCT (ACETAMINOPHEN) [Suspect]
     Indication: MYALGIA
     Dosage: SEE IMAGE
     Route: 048
     Dates: start: 20040101
  7. UNSPECIFIED NARCOTIC PAIN RELIEVERS (ALL OTHER THERAPEUTIC PRODUCTS) [Suspect]
  8. CELEXA (CITALOFRAM HYDROBROMIDE) [Concomitant]
  9. ASPZRIN (ACETYLSALICYLIC ACID) [Concomitant]
  10. ASACOL [Concomitant]
  11. CALCIUM (CALCIUM) [Concomitant]
  12. LEVOXYL [Concomitant]
  13. FOLGARD (FOLIC ACID) [Concomitant]
  14. KCL (POTASSIUM CHLORIDE) [Concomitant]
  15. FERRO-SEQUELS (FERRO-SEQUELS) [Concomitant]
  16. LOVENOX (HEPARIN-PRACTION, SODIUM SALT) [Concomitant]
  17. PROGESTERONE VAGINAL SUPPOSITORY (PROGESTERONE) [Concomitant]
  18. DEXAMETHASONE [Concomitant]
  19. VIOXX [Concomitant]

REACTIONS (9)
  - DEHYDRATION [None]
  - DIZZINESS [None]
  - DRUG ABUSER [None]
  - DRUG TOXICITY [None]
  - HYPOKALAEMIA [None]
  - LIVER TENDERNESS [None]
  - MALNUTRITION [None]
  - PANIC ATTACK [None]
  - SLEEP DISORDER [None]
